FAERS Safety Report 8461195-6 (Version None)
Quarter: 2012Q2

REPORT INFORMATION
  Report Type: 
  Country: None (occurrence: None)
  Receive Date: 20120323
  Receipt Date: 20111109
  Transmission Date: 20120825
  Serious: Yes (Hospitalization)
  Sender: FDA-Public Use
  Company Number: 163-21880-11061863

PATIENT
  Age: 80 Year
  Sex: Male
  Weight: 81.5 kg

DRUGS (2)
  1. DEXAMETHASONE [Concomitant]
  2. REVLIMID [Suspect]
     Indication: MULTIPLE MYELOMA
     Dosage: 25 MG, 1 IN 1 D, PO
     Route: 048
     Dates: start: 20110519, end: 20110603

REACTIONS (3)
  - RASH PAPULAR [None]
  - BLISTER [None]
  - RASH PRURITIC [None]
